FAERS Safety Report 11267869 (Version 1)
Quarter: 2015Q3

REPORT INFORMATION
  Report Type: Spontaneous
  Country: US (occurrence: US)
  Receive Date: 20150713
  Receipt Date: 20150713
  Transmission Date: 20151125
  Serious: No
  Sender: FDA-Public Use
  Company Number: US-TAKEDA-2014MPI000446

PATIENT
  Sex: Male
  Weight: 73.92 kg

DRUGS (8)
  1. REVLIMID [Concomitant]
     Active Substance: LENALIDOMIDE
  2. VELCADE [Suspect]
     Active Substance: BORTEZOMIB
     Indication: PLASMA CELL MYELOMA
     Dosage: 2.04 MG, CYCLIC (ON DAYS 1, 8, AND 15 EVERY 28 DAYS)
     Route: 042
     Dates: start: 201208, end: 20130812
  3. LEXAPRO [Concomitant]
     Active Substance: ESCITALOPRAM OXALATE
  4. MEGACE ES [Concomitant]
     Active Substance: MEGESTROL ACETATE
  5. METOPROLOL [Concomitant]
     Active Substance: METOPROLOL
  6. ALLOPURINOL. [Concomitant]
     Active Substance: ALLOPURINOL
  7. DIGOXIN. [Concomitant]
     Active Substance: DIGOXIN
  8. SYNTHROID [Concomitant]
     Active Substance: LEVOTHYROXINE SODIUM

REACTIONS (3)
  - Dyspnoea [Unknown]
  - Thrombocytopenia [Unknown]
  - Fatigue [Unknown]
